FAERS Safety Report 6432670-0 (Version None)
Quarter: 2009Q4

REPORT INFORMATION
  Report Type: 
  Country: None (occurrence: None)
  Receive Date: 20091109
  Receipt Date: 20091030
  Transmission Date: 20100525
  Serious: Yes (Life-Threatening, Hospitalization)
  Sender: FDA-Public Use
  Company Number: GR-GENENTECH-293463

PATIENT
  Age: 56 Year
  Sex: Female

DRUGS (1)
  1. METALYSE [Suspect]
     Indication: THROMBOLYSIS
     Dosage: UNK
     Dates: start: 20091028

REACTIONS (3)
  - CEREBRAL HAEMATOMA [None]
  - CEREBRAL HAEMORRHAGE [None]
  - HEADACHE [None]
